FAERS Safety Report 17153880 (Version 2)
Quarter: 2020Q2

REPORT INFORMATION
  Report Type: Spontaneous
  Country: US (occurrence: US)
  Receive Date: 20191213
  Receipt Date: 20200604
  Transmission Date: 20200713
  Serious: Yes (Other)
  Sender: FDA-Public Use
  Company Number: US-PFIZER INC-2018451055

PATIENT
  Age: 74 Year
  Sex: Female
  Weight: 72.57 kg

DRUGS (3)
  1. CELEBREX [Suspect]
     Active Substance: CELECOXIB
     Dosage: 200 MG, DAILY  [100 MG, ONE IN THE MORNING AND ONE AT NIGHT]
  2. CELEBREX [Suspect]
     Active Substance: CELECOXIB
     Dosage: 100 MG, 2X/DAY (1 CAPSULE TWICE DAILY AS NEEDED)
     Route: 048
  3. CELEBREX [Suspect]
     Active Substance: CELECOXIB
     Indication: ARTHRITIS
     Dosage: 100 MG, UNK

REACTIONS (2)
  - Gait inability [Unknown]
  - Product prescribing error [Unknown]
